FAERS Safety Report 18355637 (Version 4)
Quarter: 2020Q4

REPORT INFORMATION
  Report Type: Report from Study
  Country: CN (occurrence: CN)
  Receive Date: 20201007
  Receipt Date: 20201127
  Transmission Date: 20210114
  Serious: Yes (Death, Hospitalization)
  Sender: FDA-Public Use
  Company Number: CN-ASTRAZENECA-2020SF27226

PATIENT
  Age: 24405 Day
  Sex: Female

DRUGS (28)
  1. IRON PROTEINSUCCINYLA TE ORAL SOLUTION [Concomitant]
     Route: 048
     Dates: start: 20190207, end: 20190211
  2. IRON PROTEINSUCCINYLA TE ORAL SOLUTION [Concomitant]
     Route: 048
     Dates: start: 20190303, end: 20190326
  3. INJ DEXAMETHASONE [Concomitant]
     Dosage: 5.0MG ONCE/SINGLE ADMINISTRATION
     Dates: start: 20200402, end: 20200402
  4. INJ PROMETHAZINE [Concomitant]
     Dosage: 25.0MG ONCE/SINGLE ADMINISTRATION
     Dates: start: 20200406, end: 20200406
  5. OLAPARIB. [Suspect]
     Active Substance: OLAPARIB
     Indication: OVARIAN CANCER
     Route: 048
     Dates: start: 20181231, end: 20190916
  6. OLAPARIB. [Suspect]
     Active Substance: OLAPARIB
     Indication: OVARIAN CANCER
     Route: 048
     Dates: start: 20190918, end: 20190918
  7. IRON PROTEINSUCCINYLA TE ORAL SOLUTION [Concomitant]
     Route: 048
     Dates: start: 20190327, end: 20190908
  8. RECOMBINANT HUMAN THROMBOPOIETIN [Concomitant]
     Active Substance: THROMBOPOIETIN
     Dates: start: 20200331, end: 20200409
  9. VITAMIN C TABLETS [Concomitant]
     Dates: start: 20190909
  10. INTERLEUKIN-11 FOR INJECTION [Concomitant]
     Dates: start: 20200124, end: 20200130
  11. BATILOL TABLETS [Concomitant]
     Dates: start: 20200409, end: 20200409
  12. POLYFEROSE CAPSULES [Concomitant]
     Dates: start: 20190107, end: 20190207
  13. RECOMBINANT HUMAN GRANULOCYTE STIMULATING FACTOR [Concomitant]
     Dates: start: 20200402, end: 20200409
  14. 5% SODIUM BICARBONATE INJECTION [Concomitant]
     Dates: start: 20200406, end: 20200406
  15. OLAPARIB. [Suspect]
     Active Substance: OLAPARIB
     Indication: OVARIAN CANCER
     Route: 048
     Dates: start: 20200123, end: 20200123
  16. OLAPARIB. [Suspect]
     Active Substance: OLAPARIB
     Indication: OVARIAN CANCER
     Route: 048
     Dates: start: 20200218, end: 20200218
  17. OLAPARIB. [Suspect]
     Active Substance: OLAPARIB
     Indication: OVARIAN CANCER
     Route: 048
     Dates: start: 20200219, end: 20200219
  18. OLAPARIB. [Suspect]
     Active Substance: OLAPARIB
     Indication: OVARIAN CANCER
     Route: 048
     Dates: start: 20200220, end: 20200220
  19. POLYFEROSE CAPSULES [Concomitant]
     Dosage: TIME INTERVAL: 12.0 H
     Dates: start: 20190223, end: 20190303
  20. RECOMBINANT HUMAN THROMBOPOIETIN [Concomitant]
     Active Substance: THROMBOPOIETIN
     Dosage: 30000 U, ONCE
     Dates: start: 20200330, end: 20200330
  21. INJ DEXAMETHASONE [Concomitant]
     Dosage: 5.0MG ONCE/SINGLE ADMINISTRATION
     Dates: start: 20200406, end: 20200406
  22. POLYFEROSE CAPSULES [Concomitant]
     Dosage: TIME INTERVAL: 12.0 H
     Dates: start: 20190909
  23. VITAMIN C TABLETS [Concomitant]
     Dates: start: 20190327
  24. PIPERACILLIN SODIUM TAZOLE FOR INJECTION [Concomitant]
     Dosage: TIME INTERVAL: 12.0 H
     Dates: start: 20200406, end: 20200408
  25. PEGYLATED RECOMBINANT HUMAN GRANULOCYTES [Concomitant]
     Dosage: 216.0IU ONCE/SINGLE ADMINISTRATION
     Dates: start: 20200329, end: 20200329
  26. AMLODIPINE BENZOATE TABLETS [Concomitant]
     Dates: start: 20200121
  27. OLAPARIB. [Suspect]
     Active Substance: OLAPARIB
     Indication: OVARIAN CANCER
     Route: 048
     Dates: start: 20181230, end: 20181230
  28. OLAPARIB. [Suspect]
     Active Substance: OLAPARIB
     Indication: OVARIAN CANCER
     Route: 048
     Dates: start: 20190919, end: 20200122

REACTIONS (1)
  - Acute myeloid leukaemia [Fatal]

NARRATIVE: CASE EVENT DATE: 20200805
